FAERS Safety Report 7549437-2 (Version None)
Quarter: 2011Q2

REPORT INFORMATION
  Report Type: 
  Country: None (occurrence: None)
  Receive Date: 20110615
  Receipt Date: 20040927
  Transmission Date: 20111010
  Serious: Yes (Hospitalization)
  Sender: FDA-Public Use
  Company Number: PHFR2003GB04113

PATIENT
  Sex: Female

DRUGS (3)
  1. CLOZAPINE [Suspect]
     Indication: SCHIZOPHRENIA
     Dosage: UNK
     Route: 048
     Dates: start: 20030510
  2. OLANZAPINE [Suspect]
     Dosage: OVERDOSE
     Route: 048
     Dates: start: 20030519
  3. OLANZAPINE [Suspect]
     Dosage: OVERDOSE
     Route: 065
     Dates: start: 20040801

REACTIONS (5)
  - INTENTIONAL OVERDOSE [None]
  - HEART RATE IRREGULAR [None]
  - INTENTIONAL SELF-INJURY [None]
  - PYREXIA [None]
  - BLOOD PRESSURE FLUCTUATION [None]
